FAERS Safety Report 10069177 (Version 2)
Quarter: 2014Q2

REPORT INFORMATION
  Report Type: Spontaneous
  Country: US (occurrence: US)
  Receive Date: 20140409
  Receipt Date: 20140409
  Transmission Date: 20141212
  Serious: No
  Sender: FDA-Public Use
  Company Number: US-ASTELLAS-2013US008541

PATIENT
  Sex: Male

DRUGS (4)
  1. PROTOPIC [Suspect]
     Indication: INFLAMMATION
     Dosage: 0.1 %, UNKNOWN/D
     Route: 061
  2. ANTIBIOTICS [Concomitant]
     Indication: INFLAMMATION
     Dosage: UNK
     Route: 065
  3. ANTIFUNGALS FOR DERMATOLOGICAL USE [Concomitant]
     Indication: INFLAMMATION
     Dosage: UNK
     Route: 065
  4. CORTICOSTEROIDS [Concomitant]
     Indication: INFLAMMATION
     Dosage: UNK
     Route: 065

REACTIONS (1)
  - Application site pain [Unknown]
